FAERS Safety Report 6080756-5 (Version None)
Quarter: 2009Q1

REPORT INFORMATION
  Report Type: 
  Country: None (occurrence: None)
  Receive Date: 20090217
  Receipt Date: 20090210
  Transmission Date: 20090719
  Serious: Yes (Hospitalization)
  Sender: FDA-Public Use
  Company Number: US-TEVA-185362USA

PATIENT
  Age: 42 Year
  Sex: Female

DRUGS (1)
  1. CLARITHROMYCIN EXTENDED RELEASE  TABLETS 500 MG [Suspect]
     Indication: INFECTION
     Route: 048
     Dates: start: 20081203, end: 20081203

REACTIONS (4)
  - ASTHENIA [None]
  - BLOOD PRESSURE DECREASED [None]
  - HEAD INJURY [None]
  - LOSS OF CONSCIOUSNESS [None]
